FAERS Safety Report 5041633-1 (Version None)
Quarter: 2006Q2

REPORT INFORMATION
  Report Type: 
  Country: None (occurrence: None)
  Receive Date: 20060601
  Receipt Date: 20060228
  Transmission Date: 20061013
  Serious: No
  Sender: FDA-Public Use
  Company Number: 2006PV009443

PATIENT
  Age: 70 Year
  Sex: Female
  Weight: 87.0906 kg

DRUGS (6)
  1. BYETTA [Suspect]
     Indication: DIABETES MELLITUS NON-INSULIN-DEPENDENT
     Dosage: 5 MCG;BID;SC
     Route: 058
     Dates: start: 20050101
  2. LANTUS [Concomitant]
  3. HUMALOG [Concomitant]
  4. GLUCOPHAGE [Concomitant]
  5. BUMATINE [Concomitant]
  6. ZYETTA [Concomitant]

REACTIONS (5)
  - BLOOD GLUCOSE DECREASED [None]
  - BLOOD GLUCOSE INCREASED [None]
  - CONSTIPATION [None]
  - DECREASED APPETITE [None]
  - WEIGHT DECREASED [None]
